FAERS Safety Report 9393444 (Version 1)
Quarter: 2013Q3

REPORT INFORMATION
  Report Type: Spontaneous
  Country: GB (occurrence: None)
  Receive Date: 20130705
  Receipt Date: 20130705
  Transmission Date: 20140515
  Serious: Yes (Hospitalization, Other)
  Sender: FDA-Public Use
  Company Number: GB-023349

PATIENT
  Age: 78 Year
  Sex: Female

DRUGS (13)
  1. CHLORAMBUCIL [Suspect]
     Indication: CHRONIC LYMPHOCYTIC LEUKAEMIA
     Dosage: CYCLIC, DAILY FOR 1/52; EVERY 4/52?STOPPED
     Route: 048
     Dates: start: 20090219
  2. MABTHERA [Suspect]
     Indication: CHRONIC LYMPHOCYTIC LEUKAEMIA
     Dosage: INTRAVENOUS (NOT OTHERWISE SPECIFIED)?
     Route: 042
     Dates: start: 20090219
  3. METOCLOPRAMIDE [Concomitant]
  4. CLEXANE (ENOXAPARIN) (TROCHE) [Concomitant]
  5. ACICLOVIR (ACICLOVIR) [Concomitant]
  6. FLUCONAZOLE (FLUCONAZOLE) [Concomitant]
  7. PARACETAMOL (PARACETAMOL) [Concomitant]
  8. TRAMADOL (TRAMADOL) [Concomitant]
  9. MORPHINE [Concomitant]
  10. ORAMORPH (MORPHINE AND ANTISPASMODICS) [Concomitant]
  11. AMOXICILLIN (AMOXICILLIN) [Concomitant]
  12. MYSTATIN (MYSTATIN) [Concomitant]
  13. G-CSF (GRANULOCYTE-COLONY STIMULATING FACTOR) (PEGFILGRASTIM) [Concomitant]

REACTIONS (8)
  - Anaemia [None]
  - Malaise [None]
  - Procedural pain [None]
  - Chills [None]
  - Neutropenic sepsis [None]
  - C-reactive protein increased [None]
  - No therapeutic response [None]
  - White blood cell count decreased [None]
